FAERS Safety Report 7179974-4 (Version None)
Quarter: 2010Q4

REPORT INFORMATION
  Report Type: 
  Country: None (occurrence: None)
  Receive Date: 20101221
  Receipt Date: 20101214
  Transmission Date: 20110411
  Serious: Yes (Disabling)
  Sender: FDA-Public Use
  Company Number: JP-MERCK-1008USA03573

PATIENT
  Age: 88 Year
  Sex: Male

DRUGS (5)
  1. JANUVIA [Suspect]
     Indication: DIABETES MELLITUS
     Route: 048
     Dates: start: 20100310, end: 20100803
  2. AMARYL [Concomitant]
     Route: 048
  3. LIPITOR [Concomitant]
     Route: 048
  4. OLMETEC [Concomitant]
     Route: 048
  5. NORVASC [Concomitant]
     Route: 048

REACTIONS (1)
  - ANAEMIA [None]
